FAERS Safety Report 24728695 (Version 1)
Quarter: 2024Q4

REPORT INFORMATION
  Report Type: Report from Study
  Country: US (occurrence: US)
  Receive Date: 20241212
  Receipt Date: 20241212
  Transmission Date: 20250114
  Serious: Yes (Hospitalization)
  Sender: GILEAD
  Company Number: US-GILEAD-2024-0696254

PATIENT
  Sex: Male

DRUGS (1)
  1. AZTREONAM LYSINE [Suspect]
     Active Substance: AZTREONAM LYSINE
     Indication: Bacterial disease carrier
     Dosage: INHALE 1 VIAL (75 MG) VIA ALTERA NEBULIZER EVERY 8 HOURS CYCLING 28 DAYS ON, 28 DAYS OFF
     Route: 055
     Dates: start: 20231018

REACTIONS (2)
  - Infection [Unknown]
  - Product use in unapproved indication [Not Recovered/Not Resolved]
